FAERS Safety Report 23947428 (Version 1)
Quarter: 2024Q2

REPORT INFORMATION
  Report Type: Spontaneous
  Country: FR (occurrence: FR)
  Receive Date: 20240606
  Receipt Date: 20240606
  Transmission Date: 20240715
  Serious: Yes (Hospitalization)
  Sender: FDA-Public Use
  Company Number: FR-AFSSAPS-PB2024000557

PATIENT
  Weight: 69 kg

DRUGS (1)
  1. PEGCETACOPLAN [Suspect]
     Active Substance: PEGCETACOPLAN
     Indication: Sickle cell anaemia with crisis
     Dosage: 1080.000MG
     Dates: start: 20240416

REACTIONS (1)
  - Enterobacter bacteraemia [Recovered/Resolved]

NARRATIVE: CASE EVENT DATE: 20240512
